FAERS Safety Report 9261407 (Version 1)
Quarter: 2013Q2

REPORT INFORMATION
  Report Type: Spontaneous
  Country: US (occurrence: US)
  Receive Date: 20130429
  Receipt Date: 20130429
  Transmission Date: 20140414
  Serious: Yes (Hospitalization)
  Sender: FDA-Public Use
  Company Number: US-BAYER-2013-052098

PATIENT
  Age: 45 Year
  Sex: Female
  Weight: 63.49 kg

DRUGS (6)
  1. YASMIN [Suspect]
     Indication: UTERINE LEIOMYOMA
     Dosage: UNK
     Dates: end: 201112
  2. KEFLEX [Concomitant]
     Dosage: 500 MG, UNK
     Dates: start: 20111226
  3. HYDROQUINONE [Concomitant]
     Dosage: UNK
     Dates: start: 20111226
  4. MINOCIN [Concomitant]
     Dosage: 50 UNK, UNK
     Dates: start: 20111226
  5. RETIN-A [Concomitant]
     Dosage: UNK
     Dates: start: 20111226
  6. LEVOTHYROXINE [Concomitant]
     Dosage: UNK
     Dates: start: 20111226

REACTIONS (1)
  - Pulmonary embolism [Recovered/Resolved]
